FAERS Safety Report 10314135 (Version 1)
Quarter: 2014Q3

REPORT INFORMATION
  Report Type: Spontaneous
  Country: FR (occurrence: FR)
  Receive Date: 20140718
  Receipt Date: 20140718
  Transmission Date: 20150326
  Serious: Yes (Hospitalization)
  Sender: FDA-Public Use
  Company Number: FR-PFIZER INC-2014195047

PATIENT
  Age: 59 Year
  Sex: Male

DRUGS (14)
  1. NEURONTIN [Suspect]
     Active Substance: GABAPENTIN
     Indication: NEURALGIA
     Dosage: UNK
     Route: 048
     Dates: start: 200709, end: 20131205
  2. PREVISCAN [Concomitant]
     Active Substance: FLUINDIONE
     Dosage: 2 DF, DAILY
     Dates: start: 200911
  3. FEXOFENADINE [Suspect]
     Active Substance: FEXOFENADINE\FEXOFENADINE HYDROCHLORIDE
     Indication: HYPERSENSITIVITY
     Dosage: 180 MG, DAILY
     Route: 048
     Dates: end: 20140410
  4. KARDEGIC [Concomitant]
     Active Substance: ASPIRIN LYSINE
     Dosage: 75 MG, 1X/DAY
     Dates: start: 200601
  5. LANTUS [Concomitant]
     Active Substance: INSULIN GLARGINE
     Dosage: 40 IU, DAILY (IN THE EVENING)
  6. RIVOTRIL [Concomitant]
     Active Substance: CLONAZEPAM
     Dosage: 3 DROPS IN THE MORNING AND AT NOON, 10 DROPS IN THE EVENING
     Dates: start: 20131205
  7. CYMBALTA [Suspect]
     Active Substance: DULOXETINE HYDROCHLORIDE
     Indication: NEURALGIA
     Dosage: UNK
     Route: 048
     Dates: start: 2012, end: 20131119
  8. NOVORAPID [Concomitant]
     Active Substance: INSULIN ASPART
     Dosage: OCCASIONAL INTAKE
  9. SOTALOL. [Concomitant]
     Active Substance: SOTALOL
     Dosage: 112.5 MG, DAILY
     Dates: start: 200911
  10. LERCAN [Concomitant]
     Active Substance: LERCANIDIPINE
     Dosage: 10 MG, 1X/DAY
     Dates: start: 201301
  11. CRESTOR [Concomitant]
     Active Substance: ROSUVASTATIN CALCIUM
     Dosage: 10 MG, 1X/DAY
     Dates: end: 20140410
  12. KEPPRA [Concomitant]
     Active Substance: LEVETIRACETAM
     Dosage: 0.5 DF, 1X/DAY (1/2 TABLET DAILY IN THE EVENING)
  13. METFORMIN [Concomitant]
     Active Substance: METFORMIN HYDROCHLORIDE
     Dosage: 1 G, 3X/DAY
     Dates: start: 200407
  14. APROVEL [Concomitant]
     Active Substance: IRBESARTAN
     Dosage: 1 DF, 1X/DAY
     Dates: start: 201206

REACTIONS (1)
  - Oromandibular dystonia [Not Recovered/Not Resolved]

NARRATIVE: CASE EVENT DATE: 20130801
